FAERS Safety Report 9405359 (Version 1)
Quarter: 2013Q3

REPORT INFORMATION
  Report Type: Spontaneous
  Country: JP (occurrence: JP)
  Receive Date: 20130717
  Receipt Date: 20130717
  Transmission Date: 20140515
  Serious: Yes (Other)
  Sender: FDA-Public Use
  Company Number: JP-009507513-1307JPN008961

PATIENT
  Age: 38 Year
  Sex: Female
  Weight: 56 kg

DRUGS (8)
  1. BRIDION INTRAVENOUS 200MG [Suspect]
     Indication: NEUROMUSCULAR BLOCKADE REVERSAL
     Dosage: 200 MG, QD
     Route: 042
     Dates: start: 20130629, end: 20130629
  2. CEFAZOLIN SODIUM [Concomitant]
     Dosage: DAILY DOSE UNKNOWN
     Route: 041
  3. LACTEC [Concomitant]
     Dosage: DAILY DOSE UNKNOWN
     Route: 051
  4. J IODE [Concomitant]
     Dosage: DAILY DOSE UNKNOWN
     Route: 065
  5. VOLTAREN [Concomitant]
     Dosage: DAILY DOSE UNKNOWN
     Route: 065
  6. ESLAX [Concomitant]
     Dosage: DAILY DOSE UNKNOWN
     Route: 042
  7. PROPOFOL [Concomitant]
     Dosage: DAILY DOSE UNKNOWN
     Route: 042
  8. ULTIVA [Concomitant]
     Dosage: DAILY DOSE UNKNOWN
     Route: 042

REACTIONS (4)
  - Erythema [Recovered/Resolved]
  - Urticaria [Recovered/Resolved]
  - Increased bronchial secretion [Recovered/Resolved]
  - Nasal congestion [Recovered/Resolved]
